FAERS Safety Report 12872503 (Version 3)
Quarter: 2016Q4

REPORT INFORMATION
  Report Type: Spontaneous
  Country: CH (occurrence: CH)
  Receive Date: 20161021
  Receipt Date: 20161028
  Transmission Date: 20170207
  Serious: Yes (Death, Life-Threatening, Hospitalization, Other)
  Sender: FDA-Public Use
  Company Number: CH-PFIZER INC-2016489030

PATIENT
  Age: 78 Year
  Sex: Female

DRUGS (18)
  1. MOVICOL [Concomitant]
     Active Substance: POLYETHYLENE GLYCOL 3350\POTASSIUM CHLORIDE\SODIUM BICARBONATE\SODIUM CHLORIDE
     Dosage: 1 DF, 1X/DAY
     Route: 048
  2. NOVALGIN [Interacting]
     Active Substance: METAMIZOLE SODIUM
     Indication: PAIN
     Dosage: 500 MG, 2X/DAY
     Route: 048
     Dates: end: 20160924
  3. AMLODIPIN /00972401/ [Concomitant]
     Active Substance: AMLODIPINE BESYLATE
     Indication: HYPERTENSION
     Dosage: 5 MG, 1X/DAY
     Route: 048
  4. SPIRICORT [Concomitant]
     Active Substance: PREDNISOLONE
     Indication: RHEUMATOID ARTHRITIS
     Dosage: 5 MG, 1X/DAY
     Route: 048
  5. DUROGESIC [Concomitant]
     Active Substance: FENTANYL
     Indication: PAIN
     Dosage: 1 DF, UNK (1 IN 3 D)
     Route: 062
  6. METHOTREXATE. [Suspect]
     Active Substance: METHOTREXATE
     Indication: RHEUMATOID ARTHRITIS
     Dosage: 2.5 MG, 4X/DAY
     Route: 048
     Dates: start: 20160921, end: 20160923
  7. DAFALGAN [Interacting]
     Active Substance: ACETAMINOPHEN
     Indication: PAIN
     Dosage: 1 G, 3X/DAY
     Route: 048
  8. CLEXANE [Interacting]
     Active Substance: ENOXAPARIN SODIUM
     Indication: THROMBOSIS PROPHYLAXIS
     Dosage: 20 MG, 1X/DAY
     Route: 058
  9. COAPROVEL [Interacting]
     Active Substance: HYDROCHLOROTHIAZIDE\IRBESARTAN
     Indication: HYPERTENSION
     Dosage: 1 DF, 1X/DAY
     Route: 048
     Dates: end: 201609
  10. DUPHALAC [Concomitant]
     Active Substance: LACTULOSE
     Dosage: UNK
     Route: 048
  11. SYMBICORT [Concomitant]
     Active Substance: BUDESONIDE\FORMOTEROL FUMARATE DIHYDRATE
     Indication: CHRONIC OBSTRUCTIVE PULMONARY DISEASE
     Dosage: 1 DF, 1X/DAY
     Route: 055
  12. BELOC-ZOC COMP [Concomitant]
     Active Substance: HYDROCHLOROTHIAZIDE\METOPROLOL SUCCINATE
     Dosage: 50 MG, 2X/DAY
     Route: 048
  13. SERESTA [Concomitant]
     Active Substance: OXAZEPAM
     Dosage: 15 MG, 2X/DAY
     Route: 048
  14. TRAMAL [Concomitant]
     Active Substance: TRAMADOL
     Indication: PAIN
     Route: 048
  15. NEXIUM CONTROL [Interacting]
     Active Substance: ESOMEPRAZOLE MAGNESIUM
     Indication: GASTROOESOPHAGEAL REFLUX PROPHYLAXIS
     Dosage: 20 MG, 1X/DAY
     Route: 048
  16. ANAFRANIL [Concomitant]
     Active Substance: CLOMIPRAMINE HYDROCHLORIDE
     Dosage: 25 MG, 2X/DAY
     Route: 048
  17. KCL HAUSMANN [Concomitant]
     Dosage: 60 MMOL, DAILY (10 MMOL,6 IN 1 D)
     Route: 048
  18. DUROGESIC [Concomitant]
     Active Substance: FENTANYL
     Dosage: 1 DF, UNK (1 IN 3 D)
     Route: 062

REACTIONS (15)
  - Nausea [Unknown]
  - Pneumonia [Unknown]
  - Systemic candida [Unknown]
  - Pancytopenia [Fatal]
  - Mouth ulceration [Fatal]
  - Accidental overdose [Fatal]
  - Acute kidney injury [Fatal]
  - Oral herpes [Unknown]
  - Toxicity to various agents [Unknown]
  - Vomiting [Unknown]
  - Bacterial disease carrier [Unknown]
  - Septic shock [Fatal]
  - Disturbance in attention [Fatal]
  - Drug interaction [Recovered/Resolved]
  - Hepatitis [Unknown]

NARRATIVE: CASE EVENT DATE: 201609
